FAERS Safety Report 15133834 (Version 3)
Quarter: 2018Q3

REPORT INFORMATION
  Report Type: Spontaneous
  Country: US (occurrence: US)
  Receive Date: 20180712
  Receipt Date: 20180723
  Transmission Date: 20181010
  Serious: Yes (Hospitalization)
  Sender: FDA-Public Use
  Company Number: US-JNJFOC-20180633124

PATIENT
  Sex: Male
  Weight: 133.81 kg

DRUGS (10)
  1. RISPERDAL [Suspect]
     Active Substance: RISPERIDONE
     Indication: BIPOLAR I DISORDER
     Route: 048
     Dates: start: 2012
  2. RISPERDAL [Suspect]
     Active Substance: RISPERIDONE
     Indication: BIPOLAR I DISORDER
     Route: 048
     Dates: end: 2016
  3. RISPERDAL [Suspect]
     Active Substance: RISPERIDONE
     Indication: SOCIAL ANXIETY DISORDER
     Route: 048
     Dates: end: 2016
  4. PAROXETINE. [Concomitant]
     Active Substance: PAROXETINE
     Indication: DEPRESSION
     Route: 065
     Dates: start: 20120312
  5. RISPERDAL [Suspect]
     Active Substance: RISPERIDONE
     Indication: SCHIZOPHRENIA
     Route: 048
     Dates: start: 2012
  6. RISPERDAL CONSTA [Suspect]
     Active Substance: RISPERIDONE
     Indication: SOCIAL ANXIETY DISORDER
     Route: 030
     Dates: start: 2016, end: 2017
  7. RISPERDAL CONSTA [Suspect]
     Active Substance: RISPERIDONE
     Indication: SCHIZOPHRENIA
     Route: 030
     Dates: start: 2016, end: 2017
  8. RISPERDAL [Suspect]
     Active Substance: RISPERIDONE
     Indication: SCHIZOPHRENIA
     Route: 048
     Dates: end: 2016
  9. RISPERDAL [Suspect]
     Active Substance: RISPERIDONE
     Indication: SOCIAL ANXIETY DISORDER
     Route: 048
     Dates: start: 2012
  10. RISPERDAL CONSTA [Suspect]
     Active Substance: RISPERIDONE
     Indication: BIPOLAR I DISORDER
     Route: 030
     Dates: start: 2016, end: 2017

REACTIONS (17)
  - Cardiac failure [Unknown]
  - Epistaxis [Unknown]
  - Weight increased [Unknown]
  - Pain [Unknown]
  - Loss of consciousness [Unknown]
  - Hospitalisation [Unknown]
  - Victim of sexual abuse [Unknown]
  - Migraine [Unknown]
  - Gynaecomastia [Unknown]
  - Anorgasmia [Unknown]
  - Inappropriate schedule of drug administration [Unknown]
  - Paranoia [Unknown]
  - Hallucination [Unknown]
  - Rash [Unknown]
  - Off label use [Unknown]
  - Dizziness [Unknown]
  - Adverse event [Unknown]

NARRATIVE: CASE EVENT DATE: 2012
